FAERS Safety Report 12376851 (Version 1)
Quarter: 2016Q2

REPORT INFORMATION
  Report Type: Report from Study
  Country: US (occurrence: US)
  Receive Date: 20160517
  Receipt Date: 20160517
  Transmission Date: 20160815
  Serious: No
  Sender: FDA-Public Use
  Company Number: US-MALLINCKRODT-T201503400

PATIENT
  Sex: Male

DRUGS (1)
  1. REPOSITORY CORTICOTROPIN INJECTION [Suspect]
     Active Substance: CORTICOTROPIN
     Indication: NEPHROTIC SYNDROME
     Dosage: 80 UNITS TWICE PER WEEK
     Route: 058
     Dates: start: 20150316

REACTIONS (4)
  - Diplopia [Unknown]
  - Therapeutic response unexpected [Unknown]
  - Intervertebral disc disorder [Unknown]
  - Blood cholesterol decreased [None]

NARRATIVE: CASE EVENT DATE: 2015
